FAERS Safety Report 6314649-2 (Version None)
Quarter: 2009Q3

REPORT INFORMATION
  Report Type: 
  Country: None (occurrence: None)
  Receive Date: 20090817
  Receipt Date: 20090817
  Transmission Date: 20100115
  Serious: Yes (Life-Threatening)
  Sender: FDA-Public Use
  Company Number: None

PATIENT
  Age: 38 Year
  Sex: Female
  Weight: 52.1637 kg

DRUGS (1)
  1. GENERIC CARBAMEZAPINE CR 20 MG UNKNOWN [Suspect]
     Indication: EPILEPSY
     Dosage: 2 X 200 MG 2 X A DAY PO; A FEW WEEKS
     Route: 048
     Dates: start: 20090725, end: 20090809

REACTIONS (5)
  - AURA [None]
  - CONVULSION [None]
  - DRUG INEFFECTIVE [None]
  - PRODUCT SUBSTITUTION ISSUE [None]
  - VISION BLURRED [None]
